FAERS Safety Report 7320165-1 (Version None)
Quarter: 2011Q1

REPORT INFORMATION
  Report Type: 
  Country: None (occurrence: None)
  Receive Date: 20110228
  Receipt Date: 20110215
  Transmission Date: 20110831
  Serious: Yes (Hospitalization, Other)
  Sender: FDA-Public Use
  Company Number: PHHY2011US06975

PATIENT
  Sex: Male

DRUGS (4)
  1. DAEOGEN [Concomitant]
     Route: 042
  2. ANTIBIOTICS [Concomitant]
  3. EXJADE [Suspect]
     Indication: IRON OVERLOAD
     Dosage: 1000 MG, QD
     Route: 048
     Dates: start: 20101201, end: 20110211
  4. BLOOD TRANSFUSION, AUXILIARY PRODUCTS [Concomitant]

REACTIONS (3)
  - INFLUENZA [None]
  - GOUT [None]
  - SINUSITIS [None]
